FAERS Safety Report 4650658-7 (Version None)
Quarter: 2005Q2

REPORT INFORMATION
  Report Type: 
  Country: None (occurrence: None)
  Receive Date: 20050331
  Receipt Date: 20050121
  Transmission Date: 20051028
  Serious: No
  Sender: FDA-Public Use
  Company Number: 05P-163-0287608-00

PATIENT
  Age: 55 Year
  Sex: Female
  Weight: 130 kg

DRUGS (10)
  1. HUMIRA [Suspect]
     Indication: RHEUMATOID ARTHRITIS
     Dosage: 40 MG, 1 IN 2 WK, SUBCUTANEOUS
     Route: 058
     Dates: start: 20041213, end: 20050107
  2. HUMIRA [Suspect]
     Indication: RHEUMATOID ARTHRITIS
     Dosage: 40 MG, 1 IN 2 WK, SUBCUTANEOUS
     Route: 058
     Dates: start: 20050118
  3. METFORMIN HCL [Concomitant]
  4. ROSIGLITAZONE MALEATE [Concomitant]
  5. CIBRADREX [Concomitant]
  6. RANITIDINE [Concomitant]
  7. ARTHROTEC [Concomitant]
  8. HYDROXYCHLOROQUINE PHOSPHATE [Concomitant]
  9. FOLIC ACID [Concomitant]
  10. ZOCOR [Concomitant]

REACTIONS (1)
  - SINUSITIS [None]
